FAERS Safety Report 4448035-7 (Version None)
Quarter: 2004Q3

REPORT INFORMATION
  Report Type: 
  Country: None (occurrence: None)
  Receive Date: 20040817
  Receipt Date: 20040217
  Transmission Date: 20050211
  Serious: Yes (Hospitalization)
  Sender: FDA-Public Use
  Company Number: MEDI-0001474

PATIENT
  Age: 17 Month
  Sex: Male

DRUGS (3)
  1. SYNAGIS [Suspect]
     Indication: ANTIVIRAL PROPHYLAXIS
     Dosage: 1.3 M1, 1 IN 30 D, INTRA-MUSCULAR
     Route: 030
     Dates: start: 20031028, end: 20031028
  2. MONTELUKAST SODIUM (MONTELUKAST SODIUM) [Concomitant]
  3. PULMICORT [Concomitant]

REACTIONS (4)
  - COUGH [None]
  - INFLUENZA [None]
  - RESPIRATORY SYNCYTIAL VIRUS INFECTION [None]
  - UPPER RESPIRATORY TRACT CONGESTION [None]
